FAERS Safety Report 8471815-8 (Version None)
Quarter: 2012Q2

REPORT INFORMATION
  Report Type: 
  Country: None (occurrence: None)
  Receive Date: 20120627
  Receipt Date: 20120618
  Transmission Date: 20120825
  Serious: Yes (Hospitalization)
  Sender: FDA-Public Use
  Company Number: BR-ASTRAZENECA-2012SE25047

PATIENT
  Age: 52 Year
  Sex: Male
  Weight: 89 kg

DRUGS (2)
  1. CRESTOR [Suspect]
     Indication: BLOOD CHOLESTEROL INCREASED
     Route: 048
     Dates: start: 20110801
  2. BRILINTA [Suspect]
     Indication: PREOPERATIVE CARE
     Route: 048
     Dates: start: 20120201

REACTIONS (5)
  - ANGINA PECTORIS [None]
  - DYSPNOEA [None]
  - OFF LABEL USE [None]
  - FACE INJURY [None]
  - WOUND HAEMORRHAGE [None]
